FAERS Safety Report 5677770-8 (Version None)
Quarter: 2008Q1

REPORT INFORMATION
  Report Type: 
  Country: None (occurrence: None)
  Receive Date: 20080318
  Receipt Date: 20080306
  Transmission Date: 20080703
  Serious: Yes (Death)
  Sender: FDA-Public Use
  Company Number: 2008-01713

PATIENT
  Age: 70 Year
  Sex: Male

DRUGS (3)
  1. FLUOROURACIL [Suspect]
     Indication: COLON CANCER METASTATIC
     Dosage: 725MG BOLUS, 9 FORTNIGHTLY CYCLES, INTRAVENOUS, 4400MG OVER 46 HOURS, INTRAVENOUS
     Route: 042
  2. IRINOTECAN HCL [Concomitant]
  3. LEUCOVORIN CALCIUM [Concomitant]

REACTIONS (5)
  - ARTERIOSPASM CORONARY [None]
  - CARDIOTOXICITY [None]
  - MYOCARDIAL INFARCTION [None]
  - SUDDEN CARDIAC DEATH [None]
  - VENTRICULAR FIBRILLATION [None]
